FAERS Safety Report 5594023-7 (Version None)
Quarter: 2008Q1

REPORT INFORMATION
  Report Type: 
  Country: None (occurrence: None)
  Receive Date: 20080116
  Receipt Date: 20080104
  Transmission Date: 20080703
  Serious: Yes (Other)
  Sender: FDA-Public Use
  Company Number: CA-PFIZER INC-2007106619

PATIENT
  Sex: Male

DRUGS (10)
  1. LYRICA [Suspect]
     Indication: NEURALGIA
     Route: 048
     Dates: start: 20071201, end: 20071217
  2. ALL OTHER THERAPEUTIC PRODUCTS [Concomitant]
  3. METOPROLOL [Concomitant]
  4. DILTIAZEM HCL [Concomitant]
  5. LIPITOR [Concomitant]
  6. ELAVIL [Concomitant]
  7. CELLCEPT [Concomitant]
  8. FAMCICLOVIR [Concomitant]
  9. PREDNISONE TAB [Concomitant]
     Route: 047
  10. ASPIRIN [Concomitant]

REACTIONS (2)
  - DIPLOPIA [None]
  - MYASTHENIA GRAVIS [None]
